FAERS Safety Report 8036945 (Version 2)
Quarter: 2013Q2

REPORT INFORMATION
  Report Type: Spontaneous
  Country: US (occurrence: None)
  Receive Date: 20110707
  Receipt Date: 20120705
  Transmission Date: 20140414
  Serious: Yes (Hospitalization)
  Sender: FDA-Public Use
  Company Number: US-CYPR-2011-000008

PATIENT
  Age: 69 Year
  Sex: Female
  Weight: 62.6 kg

DRUGS (14)
  1. CLOPIDOGREL [Suspect]
     Indication: ANTIPLATELET THERAPY
     Route: 048
     Dates: start: 20101102
  2. ASPIRIN [Suspect]
     Indication: ANTIPLATELET THERAPY
     Route: 048
     Dates: start: 20091013
  3. VALSARTAN [Concomitant]
  4. SPIRIVA [Concomitant]
  5. ALBUTEROL SULFATE [Concomitant]
  6. SINGULAIR [Concomitant]
  7. NORVASC [Concomitant]
  8. THEOPHYLLINE [Concomitant]
  9. HABITROL [Concomitant]
  10. CO-ENZYME Q10 [Concomitant]
  11. ATORVASTATIN [Concomitant]
  12. QVAR [Concomitant]
  13. FOSAMAX [Concomitant]
  14. CYPHER STENT [Concomitant]

REACTIONS (1)
  - CALCULUS URETERIC [None]
